FAERS Safety Report 7961765-5 (Version None)
Quarter: 2011Q4

REPORT INFORMATION
  Report Type: 
  Country: None (occurrence: None)
  Receive Date: 20111202
  Receipt Date: 20111202
  Transmission Date: 20120403
  Serious: Yes (Life-Threatening, Other)
  Sender: FDA-Public Use
  Company Number: None

PATIENT
  Age: 54 Year
  Sex: Female
  Weight: 86.1834 kg

DRUGS (1)
  1. LEVETIRACETAM [Suspect]
     Indication: CONVULSION
     Dosage: 500 OR 250 AM     500 OR 250 PM
     Dates: start: 20110604

REACTIONS (11)
  - ANGER [None]
  - ARTHRALGIA [None]
  - PAIN IN JAW [None]
  - ANXIETY [None]
  - AUTOIMMUNE DISORDER [None]
  - TREMOR [None]
  - INSOMNIA [None]
  - AGGRESSION [None]
  - HEART RATE IRREGULAR [None]
  - SUICIDAL IDEATION [None]
  - DEPRESSION [None]
